FAERS Safety Report 9955780 (Version 1)
Quarter: 2014Q1

REPORT INFORMATION
  Report Type: Spontaneous
  Country: AU (occurrence: AU)
  Receive Date: 20140304
  Receipt Date: 20140304
  Transmission Date: 20141002
  Serious: Yes (Hospitalization, Other)
  Sender: FDA-Public Use
  Company Number: AU-JNJFOC-20140210825

PATIENT
  Age: 60 Year
  Sex: Male

DRUGS (5)
  1. HALOPERIDOL [Suspect]
     Indication: AGGRESSION
     Route: 030
  2. HALOPERIDOL [Suspect]
     Indication: AGGRESSION
     Route: 030
  3. HALOPERIDOL [Suspect]
     Indication: AGGRESSION
     Route: 030
  4. HALOPERIDOL [Suspect]
     Indication: AGGRESSION
     Route: 030
  5. HALOPERIDOL [Suspect]
     Indication: AGGRESSION
     Route: 030

REACTIONS (12)
  - Aggression [Not Recovered/Not Resolved]
  - Agitation [Unknown]
  - Somnolence [Unknown]
  - Decubitus ulcer [Unknown]
  - Wound sepsis [Unknown]
  - Extrapyramidal disorder [Unknown]
  - Aggression [Unknown]
  - Dysphagia [Unknown]
  - Abnormal behaviour [Unknown]
  - Drug ineffective [Unknown]
  - Inadequate diet [Unknown]
  - Fluid intake reduced [Unknown]
